FAERS Safety Report 25259014 (Version 1)
Quarter: 2025Q2

REPORT INFORMATION
  Report Type: Spontaneous
  Country: IT (occurrence: IT)
  Receive Date: 20250501
  Receipt Date: 20250501
  Transmission Date: 20250716
  Serious: Yes (Death)
  Sender: NOVARTIS
  Company Number: IT-002147023-NVSC2025IT070729

PATIENT

DRUGS (1)
  1. CYCLOSPORINE [Suspect]
     Active Substance: CYCLOSPORINE
     Indication: Hodgkin^s disease
     Route: 065

REACTIONS (2)
  - Hodgkin^s disease [Fatal]
  - Drug ineffective for unapproved indication [Unknown]
